FAERS Safety Report 13748915 (Version 1)
Quarter: 2017Q3

REPORT INFORMATION
  Report Type: Report from Study
  Country: US (occurrence: US)
  Receive Date: 20170713
  Receipt Date: 20170713
  Transmission Date: 20171127
  Serious: Yes (Death)
  Sender: FDA-Public Use
  Company Number: US-SUN PHARMACEUTICAL INDUSTRIES LTD-2017US-144931

PATIENT
  Age: 21 Year
  Sex: Female

DRUGS (5)
  1. CEPHALOTHIN [Suspect]
     Active Substance: CEPHALOTHIN
     Indication: ACUTE MYELOID LEUKAEMIA
  2. GENTAMICIN. [Suspect]
     Active Substance: GENTAMICIN
     Indication: ACUTE MYELOID LEUKAEMIA
     Dosage: UNK
     Route: 065
  3. 6-MERACPTOPURINE [Suspect]
     Active Substance: MERCAPTOPURINE ANHYDROUS
     Indication: ACUTE MYELOID LEUKAEMIA
     Route: 065
  4. PREDNISONE. [Suspect]
     Active Substance: PREDNISONE
     Indication: ACUTE MYELOID LEUKAEMIA
     Route: 065
  5. VINCRISTINE [Suspect]
     Active Substance: VINCRISTINE
     Indication: ACUTE MYELOID LEUKAEMIA
     Route: 065

REACTIONS (1)
  - Drug resistance [Fatal]
